FAERS Safety Report 22541868 (Version 1)
Quarter: 2023Q2

REPORT INFORMATION
  Report Type: Spontaneous
  Country: US (occurrence: None)
  Receive Date: 20230608
  Receipt Date: 20230608
  Transmission Date: 20230721
  Serious: Yes (Life-Threatening, Hospitalization)
  Sender: FDA-Public Use
  Company Number: None

PATIENT
  Age: 66 Year
  Sex: Female

DRUGS (1)
  1. NIRAPARIB [Suspect]
     Active Substance: NIRAPARIB

REACTIONS (4)
  - Confusional state [None]
  - Hallucination, visual [None]
  - Hypercalcaemia [None]
  - Hypomagnesaemia [None]

NARRATIVE: CASE EVENT DATE: 20230406
